FAERS Safety Report 7890339-X (Version None)
Quarter: 2011Q4

REPORT INFORMATION
  Report Type: 
  Country: None (occurrence: None)
  Receive Date: 20111103
  Receipt Date: 20111025
  Transmission Date: 20120403
  Serious: Yes (Other)
  Sender: FDA-Public Use
  Company Number: DE-BAXTER-2011BH035106

PATIENT
  Sex: Female

DRUGS (6)
  1. ANTIEMETIC [Concomitant]
     Indication: PROPHYLAXIS
     Route: 065
  2. NEUPOGEN [Concomitant]
     Indication: PROPHYLAXIS
     Route: 065
  3. CYCLOPHOSPHAMIDE [Suspect]
     Indication: BREAST CANCER
     Route: 042
  4. DOCETAXEL [Suspect]
     Indication: BREAST CANCER
     Route: 042
  5. DOXORUBICIN HCL [Suspect]
     Indication: BREAST CANCER
     Route: 040
  6. CORTICOSTEROID [Concomitant]
     Indication: PREMEDICATION
     Route: 065

REACTIONS (1)
  - PERIPHERAL SENSORY NEUROPATHY [None]
